FAERS Safety Report 11694930 (Version 1)
Quarter: 2015Q4

REPORT INFORMATION
  Report Type: Spontaneous
  Country: GB (occurrence: GB)
  Receive Date: 20151103
  Receipt Date: 20151103
  Transmission Date: 20160304
  Serious: Yes (Hospitalization)
  Sender: FDA-Public Use
  Company Number: PHHY2015GB138921

PATIENT
  Age: 68 Year
  Sex: Male
  Weight: 76.2 kg

DRUGS (1)
  1. TAMSULOSIN [Suspect]
     Active Substance: TAMSULOSIN
     Indication: BENIGN PROSTATIC HYPERPLASIA
     Dosage: 400 UG, UNK
     Route: 048

REACTIONS (2)
  - Urinary retention [Not Recovered/Not Resolved]
  - Hypotonic urinary bladder [Not Recovered/Not Resolved]
